FAERS Safety Report 16135467 (Version 1)
Quarter: 2019Q1

REPORT INFORMATION
  Report Type: Spontaneous
  Country: SE (occurrence: SE)
  Receive Date: 20190329
  Receipt Date: 20190329
  Transmission Date: 20190418
  Serious: Yes (Other)
  Sender: FDA-Public Use
  Company Number: SE-SA-S/SEZOL00006

PATIENT
  Age: 48 Year
  Sex: Male

DRUGS (2)
  1. CITODON [CODEINE PHOSPHATE HEMIHYDRATE;PARACETAMOL] [Suspect]
     Active Substance: ACETAMINOPHEN\CODEINE PHOSPHATE
     Dosage: 12 DF, QD
     Route: 048
     Dates: start: 19990128, end: 19990218
  2. STILNOCT [Suspect]
     Active Substance: ZOLPIDEM TARTRATE
     Dosage: 10 DF, QD
     Route: 048
     Dates: start: 19990128, end: 19990218

REACTIONS (4)
  - Generalised tonic-clonic seizure [Recovered/Resolved]
  - Drug withdrawal convulsions [Unknown]
  - Withdrawal syndrome [Unknown]
  - Overdose [Unknown]

NARRATIVE: CASE EVENT DATE: 19990223
